FAERS Safety Report 4336463-X (Version None)
Quarter: 2004Q2

REPORT INFORMATION
  Report Type: 
  Country: None (occurrence: None)
  Receive Date: 20040407
  Receipt Date: 20040324
  Transmission Date: 20050107
  Serious: Yes (Hospitalization)
  Sender: FDA-Public Use
  Company Number: USA040363087

PATIENT
  Age: 88 Year
  Sex: Female

DRUGS (2)
  1. ZYPREXA [Suspect]
     Dosage: 5 MG
  2. ARICEPT [Concomitant]

REACTIONS (2)
  - CARDIAC DISORDER [None]
  - LUNG DISORDER [None]
